FAERS Safety Report 9486388 (Version 1)
Quarter: 2013Q3

REPORT INFORMATION
  Report Type: Spontaneous
  Country: US (occurrence: None)
  Receive Date: 20130827
  Receipt Date: 20130827
  Transmission Date: 20140515
  Serious: Yes (Life-Threatening)
  Sender: FDA-Public Use
  Company Number: None

PATIENT
  Age: 13 Year
  Sex: Male
  Weight: 54.43 kg

DRUGS (3)
  1. VANCOMYCIN [Suspect]
     Indication: OSTEOMYELITIS
     Dosage: 825MG FOUR TIMES DAILY INTO A VEIN
     Route: 042
     Dates: start: 20130818, end: 20130819
  2. CEFAZOLIN [Suspect]
  3. MULTI VITAMIN [Concomitant]

REACTIONS (9)
  - Pallor [None]
  - Somnolence [None]
  - Muscle spasms [None]
  - Injection site pain [None]
  - Chest pain [None]
  - Dyspnoea [None]
  - Nasopharyngitis [None]
  - Medication error [None]
  - Pain in extremity [None]
